FAERS Safety Report 15827263 (Version 3)
Quarter: 2019Q1

REPORT INFORMATION
  Report Type: Report from Study
  Country: US (occurrence: US)
  Receive Date: 20190115
  Receipt Date: 20190315
  Transmission Date: 20190417
  Serious: Yes (Death, Hospitalization)
  Sender: FDA-Public Use
  Company Number: US-ASTELLAS-2019US001576

PATIENT
  Age: 79 Year
  Sex: Male

DRUGS (1)
  1. ENZALUTAMIDE [Suspect]
     Active Substance: ENZALUTAMIDE
     Indication: PROSTATE CANCER
     Route: 048
     Dates: start: 20180315, end: 20190102

REACTIONS (4)
  - Death [Fatal]
  - Fall [Unknown]
  - General physical health deterioration [Unknown]
  - Gait inability [Unknown]

NARRATIVE: CASE EVENT DATE: 20181215
